FAERS Safety Report 24213082 (Version 2)
Quarter: 2024Q3

REPORT INFORMATION
  Report Type: Report from Study
  Country: MX (occurrence: MX)
  Receive Date: 20240815
  Receipt Date: 20240910
  Transmission Date: 20241017
  Serious: Yes (Hospitalization)
  Sender: ROCHE
  Company Number: MX-ROCHE-10000054857

PATIENT
  Age: 25 Year
  Sex: Female
  Weight: 54 kg

DRUGS (3)
  1. OCREVUS [Suspect]
     Active Substance: OCRELIZUMAB
     Indication: Multiple sclerosis
     Route: 042
     Dates: start: 20181116
  2. SERTRALINE [Concomitant]
     Active Substance: SERTRALINE HYDROCHLORIDE
     Indication: Depression
     Dosage: DOSE AND FREQUENCY WERE NOT REPORTED
     Route: 065
  3. CITALOPRAM [Concomitant]
     Active Substance: CITALOPRAM\CITALOPRAM HYDROBROMIDE
     Indication: Depression
     Dosage: DOSE AND FREQUENCY WERE NOT REPORTED

REACTIONS (7)
  - Depression [Recovering/Resolving]
  - Feeling abnormal [Recovered/Resolved]
  - Dysbiosis [Recovered/Resolved]
  - Multiple sclerosis [Recovered/Resolved]
  - Weight fluctuation [Recovered/Resolved]
  - Acne [Recovered/Resolved]
  - Rhinorrhoea [Recovered/Resolved]

NARRATIVE: CASE EVENT DATE: 20190101
